FAERS Safety Report 14012106 (Version 1)
Quarter: 2017Q3

REPORT INFORMATION
  Report Type: Spontaneous
  Country: US (occurrence: US)
  Receive Date: 20170926
  Receipt Date: 20170926
  Transmission Date: 20171128
  Serious: Yes (Other)
  Sender: FDA-Public Use
  Company Number: None

PATIENT
  Age: 57 Year
  Sex: Female
  Weight: 93.4 kg

DRUGS (1)
  1. OCREVUS [Suspect]
     Active Substance: OCRELIZUMAB
     Indication: MULTIPLE SCLEROSIS
     Dosage: ?          OTHER FREQUENCY:Q2 WK THEN Q 6 MO;?
     Route: 041
     Dates: start: 20170830, end: 20170926

REACTIONS (4)
  - Infusion related reaction [None]
  - Feeling hot [None]
  - Ear pruritus [None]
  - Erythema [None]

NARRATIVE: CASE EVENT DATE: 20170830
